FAERS Safety Report 18147218 (Version 2)
Quarter: 2020Q3

REPORT INFORMATION
  Report Type: Report from Study
  Country: CA (occurrence: CA)
  Receive Date: 20200813
  Receipt Date: 20200831
  Transmission Date: 20201103
  Serious: Yes (Other)
  Sender: FDA-Public Use
  Company Number: CA-TAKEDA-2020TUS034544

PATIENT
  Age: 79 Year
  Sex: Male
  Weight: 59.7 kg

DRUGS (3)
  1. IXAZOMIB [Suspect]
     Active Substance: IXAZOMIB
     Indication: PLASMA CELL MYELOMA
     Dosage: 3 MILLIGRAM, 1/WEEK
     Route: 048
     Dates: start: 20190722, end: 20200804
  2. REVLIMID [Concomitant]
     Active Substance: LENALIDOMIDE
     Dosage: 40 MILLIGRAM
     Route: 048
     Dates: start: 201807
  3. DEXAMETHASONE. [Concomitant]
     Active Substance: DEXAMETHASONE
     Dosage: 40 MILLIGRAM
     Route: 048
     Dates: start: 201807

REACTIONS (1)
  - Plasma cell myeloma [Recovered/Resolved]

NARRATIVE: CASE EVENT DATE: 202002
